FAERS Safety Report 4416495-3 (Version None)
Quarter: 2004Q3

REPORT INFORMATION
  Report Type: 
  Country: None (occurrence: None)
  Receive Date: 20040802
  Receipt Date: 20040719
  Transmission Date: 20050211
  Serious: Yes (Life-Threatening, Hospitalization)
  Sender: FDA-Public Use
  Company Number: TNZIE200400060

PATIENT
  Sex: Female

DRUGS (19)
  1. INNOHEP (INJECTION) (TINZAPARIN SODIUM INJECTION) [Suspect]
     Indication: THROMBOSIS PROPHYLAXIS
     Dosage: 175 IU/KG (175 IU/KG), 1 IN 1 D), SUBCUTANEOUS
     Route: 058
     Dates: start: 20030821, end: 20030924
  2. WARFARIN SODIUM [Concomitant]
  3. ATIVAN [Concomitant]
  4. SENOKOT [Concomitant]
  5. DUROGESIC (FENTANYL) [Concomitant]
  6. FOLIC ACID [Concomitant]
  7. MAGNESIUM SULFATE [Concomitant]
  8. KLACID LA (CLARITHROMYCIN) [Concomitant]
  9. SOLPADEINE [Concomitant]
  10. LOSEC (OMEPRAZOLE) [Concomitant]
  11. ACTIQ [Concomitant]
  12. PETHIDINE [Concomitant]
  13. CYCLIZINE [Concomitant]
  14. ACETAMINOPHEN [Concomitant]
  15. MILPAR (MAG-LAX) [Concomitant]
  16. GAVISCON [Concomitant]
  17. MOVICOL (NULYTELY) [Concomitant]
  18. DUPHALAC [Concomitant]
  19. GALFER IBD (FERROUS FUMARATE) [Concomitant]

REACTIONS (8)
  - DISEASE RECURRENCE [None]
  - DRUG EXPOSURE DURING PREGNANCY [None]
  - LUMBAR VERTEBRAL FRACTURE [None]
  - OSTEOPENIA [None]
  - OSTEOPOROSIS [None]
  - PELVIC FRACTURE [None]
  - PHLEBOTHROMBOSIS [None]
  - PULMONARY EMBOLISM [None]
